FAERS Safety Report 21342313 (Version 2)
Quarter: 2022Q3

REPORT INFORMATION
  Report Type: Spontaneous
  Country: US (occurrence: US)
  Receive Date: 20220916
  Receipt Date: 20220916
  Transmission Date: 20221026
  Serious: Yes (Other)
  Sender: FDA-Public Use
  Company Number: US-PFIZER INC-2021430993

PATIENT
  Age: 45 Year
  Sex: Male

DRUGS (1)
  1. RAPAMUNE [Suspect]
     Active Substance: SIROLIMUS
     Indication: Immunosuppression
     Dosage: 1 MG, DAILY
     Route: 048

REACTIONS (2)
  - Adrenal insufficiency [Unknown]
  - Off label use [Unknown]
